FAERS Safety Report 6169570-X (Version None)
Quarter: 2009Q2

REPORT INFORMATION
  Report Type: 
  Country: None (occurrence: None)
  Receive Date: 20090428
  Receipt Date: 20090421
  Transmission Date: 20091009
  Serious: Yes (Other)
  Sender: FDA-Public Use
  Company Number: US-ASTRAZENECA-2009UW10015

PATIENT
  Age: 45 Year
  Sex: Female

DRUGS (4)
  1. CRESTOR [Suspect]
     Route: 048
     Dates: start: 20090205
  2. AVELOX [Suspect]
     Indication: BRONCHITIS
     Route: 048
     Dates: start: 20090206
  3. CIPROFLOXACIN [Concomitant]
     Route: 048
  4. LEVAQUIN [Concomitant]

REACTIONS (8)
  - ANAPHYLACTIC SHOCK [None]
  - DYSPEPSIA [None]
  - FACE OEDEMA [None]
  - FLUSHING [None]
  - PARAESTHESIA [None]
  - PRURITUS [None]
  - URTICARIA [None]
  - VOMITING [None]
